FAERS Safety Report 17824884 (Version 1)
Quarter: 2020Q2

REPORT INFORMATION
  Report Type: Spontaneous
  Country: CA (occurrence: CA)
  Receive Date: 20200526
  Receipt Date: 20200526
  Transmission Date: 20200714
  Serious: Yes (Life-Threatening, Other)
  Sender: FDA-Public Use
  Company Number: CA-TEVA-2020-CA-1238843

PATIENT
  Age: 34 Year
  Sex: Female
  Weight: 48 kg

DRUGS (2)
  1. CISPLATIN INJECTION [Concomitant]
     Active Substance: CISPLATIN
  2. ETOPOSIDE. [Suspect]
     Active Substance: ETOPOSIDE
     Indication: CERVIX CARCINOMA
     Route: 042

REACTIONS (8)
  - Product use in unapproved indication [Unknown]
  - Flushing [Unknown]
  - Dizziness [Unknown]
  - Reduced facial expression [Unknown]
  - Type I hypersensitivity [Unknown]
  - Chills [Unknown]
  - Abdominal pain [Unknown]
  - Erythema [Unknown]
